FAERS Safety Report 7721641-X (Version None)
Quarter: 2011Q3

REPORT INFORMATION
  Report Type: 
  Country: None (occurrence: None)
  Receive Date: 20110831
  Receipt Date: 20110819
  Transmission Date: 20111222
  Serious: Yes (Hospitalization)
  Sender: FDA-Public Use
  Company Number: US-GLAXOSMITHKLINE-A0755435A

PATIENT
  Age: 51 Year
  Sex: Female
  Weight: 77.3 kg

DRUGS (3)
  1. HUMALOG [Concomitant]
     Dates: start: 20070101
  2. AVANDIA [Suspect]
     Indication: DIABETES MELLITUS
     Dosage: 4MG TWICE PER DAY
     Route: 048
     Dates: start: 20010101, end: 20060613
  3. HUMULIN R [Concomitant]
     Dates: start: 20010101

REACTIONS (4)
  - MYOCARDIAL INFARCTION [None]
  - DEPRESSION [None]
  - ANXIETY [None]
  - CARDIOVASCULAR DISORDER [None]
